FAERS Safety Report 9498701 (Version 1)
Quarter: 2013Q3

REPORT INFORMATION
  Report Type: Spontaneous
  Country: US (occurrence: None)
  Receive Date: 20130830
  Receipt Date: 20130830
  Transmission Date: 20140515
  Serious: Yes (Death, Life-Threatening, Hospitalization, Other)
  Sender: FDA-Public Use
  Company Number: CO-OR-UK-2013-023

PATIENT
  Age: 44 Year
  Sex: Female

DRUGS (6)
  1. PREDNISOLONE (PREDNISOLONE) [Suspect]
     Route: 048
  2. METHYLPREDNISOLONE [Suspect]
  3. IMMUNOGLOBULIN [Concomitant]
  4. VANCOMYCIN [Concomitant]
  5. LINEZOLID [Concomitant]
  6. GANCICLOVIR [Concomitant]

REACTIONS (5)
  - Pemphigoid [None]
  - Toxic epidermal necrolysis [None]
  - Staphylococcus test positive [None]
  - Pseudomonas infection [None]
  - Acinetobacter test positive [None]
